FAERS Safety Report 13347517 (Version 5)
Quarter: 2017Q2

REPORT INFORMATION
  Report Type: Spontaneous
  Country: FR (occurrence: FR)
  Receive Date: 20170317
  Receipt Date: 20170606
  Transmission Date: 20170830
  Serious: Yes (Hospitalization, Disabling, Other)
  Sender: FDA-Public Use
  Company Number: FR-009507513-2004-12-0137

PATIENT
  Age: 24 Year
  Sex: Male
  Weight: 92 kg

DRUGS (11)
  1. ABILIFY [Concomitant]
     Active Substance: ARIPIPRAZOLE
     Dosage: 1 DF, QAM
     Route: 048
     Dates: start: 20150206
  2. ZOLOFT [Concomitant]
     Active Substance: SERTRALINE HYDROCHLORIDE
     Dosage: 25 MG, 1 TABLET IN THE EVENING
     Dates: start: 201411
  3. ZOLOFT [Concomitant]
     Active Substance: SERTRALINE HYDROCHLORIDE
     Dosage: 50 MG, 1 TABLET IN THE MORNING
     Dates: start: 201411
  4. ABILIFY [Concomitant]
     Active Substance: ARIPIPRAZOLE
     Dosage: 5 MG, 1 TABLET, IN THE MORNING
     Route: 048
     Dates: start: 201411
  5. ZOLOFT [Concomitant]
     Active Substance: SERTRALINE HYDROCHLORIDE
     Dosage: 50 MG, MORNING
     Route: 048
     Dates: start: 20150206
  6. LAMALINE [Concomitant]
     Active Substance: ACETAMINOPHEN\CAFFEINE\OPIUM
     Dosage: UNK
     Dates: end: 20151116
  7. CELESTENE [Suspect]
     Active Substance: BETAMETHASONE
     Indication: ANTIINFLAMMATORY THERAPY
     Dosage: 2 MG (THREE TABLETS FOR 8 DAYS)
     Route: 048
     Dates: start: 20020822, end: 20020829
  8. AUGMENTIN [Concomitant]
     Active Substance: AMOXICILLIN\CLAVULANATE POTASSIUM
     Dosage: DOSE: UNKNOWN DURATION: 8 DAY(S)
  9. ZOLOFT [Concomitant]
     Active Substance: SERTRALINE HYDROCHLORIDE
     Dosage: 25 MG, EVENING
     Route: 048
     Dates: start: 20150206
  10. VALIUM [Concomitant]
     Active Substance: DIAZEPAM
     Dosage: 5 MG, 1 TABLET IN THE MORNING (IF NEED), 1 TABLET MIDDAY (IF NEED), 1 TABLET EVENING
     Dates: start: 201411
  11. DAFALGAN [Concomitant]
     Active Substance: ACETAMINOPHEN
     Dosage: UNK
     Dates: start: 20151116

REACTIONS (22)
  - Pain [Unknown]
  - Device failure [Unknown]
  - Sciatica [Unknown]
  - Muscle disorder [Unknown]
  - Neck pain [Unknown]
  - Osteonecrosis [Unknown]
  - Burning sensation [Unknown]
  - Persistent depressive disorder [Unknown]
  - Appendicectomy [Unknown]
  - Paraesthesia [Unknown]
  - Suicidal ideation [Unknown]
  - Hallucination [Unknown]
  - Sciatica [Unknown]
  - Limb discomfort [Unknown]
  - Osteonecrosis [Unknown]
  - Alcohol use [Unknown]
  - Pain [Unknown]
  - Procedural pain [Unknown]
  - Arteriovenous malformation [Unknown]
  - Hydrocele operation [Unknown]
  - Back pain [Unknown]
  - Visual impairment [Unknown]

NARRATIVE: CASE EVENT DATE: 200211
